FAERS Safety Report 7053239-3 (Version None)
Quarter: 2010Q4

REPORT INFORMATION
  Report Type: 
  Country: None (occurrence: None)
  Receive Date: 20101020
  Receipt Date: 20101007
  Transmission Date: 20110411
  Serious: Yes (Hospitalization)
  Sender: FDA-Public Use
  Company Number: IT-CELGENEUS-083-C5013-10100698

PATIENT
  Sex: Female
  Weight: 74 kg

DRUGS (13)
  1. CC-5013 [Suspect]
     Indication: MULTIPLE MYELOMA
     Route: 048
     Dates: start: 20100729
  2. CC-5013 [Suspect]
     Route: 048
     Dates: start: 20100923
  3. DEXAMETHASONE [Suspect]
     Indication: MULTIPLE MYELOMA
     Route: 065
     Dates: start: 20100729
  4. DEXAMETHASONE [Suspect]
     Route: 065
     Dates: start: 20100923
  5. PROVISACOR [Concomitant]
     Route: 048
     Dates: start: 20090601
  6. BACTRIM [Concomitant]
     Indication: ANTIBIOTIC PROPHYLAXIS
     Route: 048
     Dates: start: 20100729
  7. NEXIUM [Concomitant]
     Indication: PROPHYLAXIS
     Route: 048
     Dates: start: 20100729
  8. BIFRIZIDE [Concomitant]
     Indication: HYPERTENSION
     Route: 048
     Dates: start: 20090101
  9. SINTROM [Concomitant]
     Indication: ATRIAL FIBRILLATION
     Route: 048
     Dates: start: 20070101
  10. SINTROM [Concomitant]
     Indication: PROPHYLAXIS
  11. CARDURA [Concomitant]
     Indication: HYPERTENSION
     Route: 048
     Dates: start: 20090101, end: 20100908
  12. EUTIROX [Concomitant]
     Route: 048
     Dates: start: 20100401
  13. DIURESIX [Concomitant]
     Indication: HYPERTENSION
     Route: 048
     Dates: start: 20100909

REACTIONS (2)
  - ASTHMA [None]
  - BRONCHITIS [None]
